FAERS Safety Report 7775450-6 (Version None)
Quarter: 2011Q3

REPORT INFORMATION
  Report Type: 
  Country: None (occurrence: None)
  Receive Date: 20110923
  Receipt Date: 20110920
  Transmission Date: 20111222
  Serious: Yes (Other)
  Sender: FDA-Public Use
  Company Number: PHHY2011JP84108

PATIENT
  Sex: Male
  Weight: 67 kg

DRUGS (4)
  1. ASPIRIN [Concomitant]
     Dosage: 81 MG,
     Route: 048
  2. SIGMART [Concomitant]
     Dosage: 15 MG, UNK
     Route: 048
     Dates: start: 20110603
  3. AFINITOR [Suspect]
     Indication: RENAL CELL CARCINOMA
     Dosage: 10 MG,DAILY
     Route: 048
     Dates: start: 20110603, end: 20110606
  4. INTRON A [Concomitant]
     Indication: RENAL CELL CARCINOMA
     Dosage: 3000000IU
     Dates: start: 20110630, end: 20110720

REACTIONS (3)
  - BONE MARROW FAILURE [None]
  - NEOPLASM PROGRESSION [None]
  - NEOPLASM MALIGNANT [None]
